FAERS Safety Report 22178554 (Version 8)
Quarter: 2024Q1

REPORT INFORMATION
  Report Type: Spontaneous
  Country: US (occurrence: US)
  Receive Date: 20230405
  Receipt Date: 20240104
  Transmission Date: 20240409
  Serious: Yes (Hospitalization)
  Sender: FDA-Public Use
  Company Number: US-KARYOPHARM-2023KPT000799

PATIENT

DRUGS (4)
  1. XPOVIO [Suspect]
     Active Substance: SELINEXOR
     Indication: Plasma cell myeloma
     Dosage: 60 MG, WEEKLY
     Route: 048
     Dates: start: 20230120
  2. XPOVIO [Suspect]
     Active Substance: SELINEXOR
     Dosage: 60 MG, 1X/2 WEEKS
     Route: 048
     Dates: start: 202302, end: 2023
  3. XPOVIO [Suspect]
     Active Substance: SELINEXOR
     Dosage: 40 MG, 1X/2 WEEKS ON DAY 1 AND 15 OF A 28-DAY CYCLE
     Route: 048
     Dates: start: 2023, end: 2023
  4. XPOVIO [Suspect]
     Active Substance: SELINEXOR
     Dosage: 40 MG, WEEKLY ON DAY 1 AND 15 OF A 28 DAY CYCLE
     Route: 048
     Dates: start: 2023

REACTIONS (6)
  - Fall [Unknown]
  - Rib fracture [Unknown]
  - Blood uric acid increased [Unknown]
  - Nausea [Recovering/Resolving]
  - Fatigue [Unknown]
  - Skin neoplasm excision [Recovering/Resolving]

NARRATIVE: CASE EVENT DATE: 20230101
